FAERS Safety Report 12937638 (Version 1)
Quarter: 2016Q4

REPORT INFORMATION
  Report Type: Spontaneous
  Country: AU (occurrence: AU)
  Receive Date: 20161114
  Receipt Date: 20161114
  Transmission Date: 20170207
  Serious: Yes (Other)
  Sender: FDA-Public Use
  Company Number: AU-LEHIGH_VALLEY-USA-POI0580201600108

PATIENT
  Sex: Female
  Weight: 48 kg

DRUGS (10)
  1. LEVOLET (LEVOTHYROXINE) [Suspect]
     Active Substance: LEVOTHYROXINE
     Dosage: 50 MCG QD MONDAY THROUGH FRIDAY
     Dates: start: 2013
  2. PANADOL [Concomitant]
     Active Substance: ACETAMINOPHEN
  3. ENDEP [Concomitant]
     Active Substance: AMITRIPTYLINE HYDROCHLORIDE
  4. VITAMIN C [Concomitant]
     Active Substance: ASCORBIC ACID
  5. LEVOLET (LEVOTHYROXINE) [Suspect]
     Active Substance: LEVOTHYROXINE
     Dosage: 25 MCG QD SATURDAY AND SUNDAY
     Dates: start: 2013
  6. PANADEINE [Concomitant]
     Active Substance: ACETAMINOPHEN\CODEINE PHOSPHATE
  7. SANDRENA [Suspect]
     Active Substance: ESTRADIOL
  8. ASPIRIN. [Concomitant]
     Active Substance: ASPIRIN
     Indication: BACK PAIN
  9. INDOCID [Concomitant]
     Active Substance: INDOMETHACIN
     Indication: BACK PAIN
  10. BLACKMORES MULTIVITAMINS [Concomitant]

REACTIONS (18)
  - Syncope [Unknown]
  - Food intolerance [Unknown]
  - Addison^s disease [Unknown]
  - Amnesia [Unknown]
  - Agitation [Unknown]
  - Temperature intolerance [Unknown]
  - Fat tissue increased [None]
  - Intentional product use issue [None]
  - Heart rate irregular [Unknown]
  - Muscle spasms [Unknown]
  - Restlessness [Unknown]
  - Decreased appetite [Unknown]
  - Dry mouth [Unknown]
  - Drug interaction [Unknown]
  - Flushing [Unknown]
  - Insomnia [Unknown]
  - Stress [Unknown]
  - Rash [Unknown]

NARRATIVE: CASE EVENT DATE: 2016
